FAERS Safety Report 9773138 (Version 2)
Quarter: 2014Q1

REPORT INFORMATION
  Report Type: Spontaneous
  Country: US (occurrence: None)
  Receive Date: 20131217
  Receipt Date: 20140220
  Transmission Date: 20141002
  Serious: Yes (Hospitalization, Other)
  Sender: FDA-Public Use
  Company Number: AUR-APL-2013-10556

PATIENT
  Age: 80 Year
  Sex: Male

DRUGS (5)
  1. OLANZAPINE [Suspect]
     Indication: BIPOLAR DISORDER
     Dosage: 5 MG, 2 IN 1 D
  2. ASPIRIN (ACETYLSALICYLIC ACID) [Concomitant]
  3. INSULIN (INSULIN) [Concomitant]
  4. AMLODIPINE (AMPLDIPINE) [Concomitant]
  5. DONEPEZIL (DONEPEZIL) [Concomitant]

REACTIONS (10)
  - Hypothermia [None]
  - Dehydration [None]
  - Gastroenteritis [None]
  - Renal failure acute [None]
  - Mental status changes [None]
  - Blood pressure decreased [None]
  - Respiratory distress [None]
  - Blood potassium increased [None]
  - Sinus bradycardia [None]
  - Renal tubular necrosis [None]
